FAERS Safety Report 12722365 (Version 3)
Quarter: 2017Q1

REPORT INFORMATION
  Report Type: Spontaneous
  Country: US (occurrence: US)
  Receive Date: 20160907
  Receipt Date: 20170113
  Transmission Date: 20170428
  Serious: Yes (Hospitalization, Other)
  Sender: FDA-Public Use
  Company Number: US-SAOL THERAPEUTICS-2016SAO00560

PATIENT
  Age: 38 Year
  Sex: Male
  Weight: 62 kg

DRUGS (13)
  1. LIORESAL [Suspect]
     Active Substance: BACLOFEN
     Dosage: UNK
     Dates: start: 201109
  2. LIORESAL [Suspect]
     Active Substance: BACLOFEN
     Indication: CEREBRAL PALSY
     Dosage: 195.06 ?G, \DAY
     Route: 037
     Dates: end: 201602
  3. AMLODIPINE [Concomitant]
     Active Substance: AMLODIPINE BESYLATE
     Dosage: 2.5 MG, 1X/DAY
  4. LIORESAL [Suspect]
     Active Substance: BACLOFEN
     Indication: CEREBRAL PALSY
     Dosage: UNK
     Dates: start: 20160809, end: 20160817
  5. LIORESAL [Suspect]
     Active Substance: BACLOFEN
     Indication: MUSCLE SPASTICITY
     Dosage: 169.9 ?G, \DAY
     Dates: start: 20160817, end: 20160824
  6. LIORESAL [Suspect]
     Active Substance: BACLOFEN
     Indication: MUSCLE SPASTICITY
  7. LIORESAL [Suspect]
     Active Substance: BACLOFEN
     Dosage: 119.9 ?G, \DAY
     Dates: start: 20160831, end: 20160907
  8. VITAMIN D [Concomitant]
     Active Substance: CHOLECALCIFEROL
  9. LIORESAL [Suspect]
     Active Substance: BACLOFEN
     Dosage: 215.1 ?G, \DAY
     Dates: start: 20160824, end: 20160831
  10. LIORESAL [Suspect]
     Active Substance: BACLOFEN
     Dosage: 85.0 ?G, \DAY
     Dates: start: 20160907
  11. DOCUSATE [Concomitant]
     Active Substance: DOCUSATE
  12. SCOPOLAMINE PATCH [Concomitant]
     Active Substance: SCOPOLAMINE
  13. TAMSULOSIN [Concomitant]
     Active Substance: TAMSULOSIN
     Dosage: 0.4 MG, 1X/DAY

REACTIONS (12)
  - Somnolence [Recovered/Resolved]
  - Blood pressure decreased [Recovered/Resolved]
  - Constipation [Recovered/Resolved]
  - Pallor [Recovered/Resolved]
  - Therapy non-responder [Not Recovered/Not Resolved]
  - Hyperhidrosis [Recovered/Resolved]
  - Feeling abnormal [Recovered/Resolved]
  - Device issue [Recovered/Resolved]
  - Hiatus hernia [Recovered/Resolved]
  - Oesophageal ulcer haemorrhage [Recovered/Resolved]
  - Device infusion issue [Recovered/Resolved]
  - Device failure [Recovered/Resolved]

NARRATIVE: CASE EVENT DATE: 201603
